FAERS Safety Report 4879492-X (Version None)
Quarter: 2005Q4

REPORT INFORMATION
  Report Type: 
  Country: None (occurrence: None)
  Receive Date: 20051209
  Receipt Date: 20050930
  Transmission Date: 20060501
  Serious: Yes (Death)
  Sender: FDA-Public Use
  Company Number: USA-2005-0021375

PATIENT
  Age: 41 Year
  Sex: Female
  Weight: 90.2 kg

DRUGS (12)
  1. OXYCODONE HCL [Suspect]
  2. ETHANOL (ETHANOL) [Suspect]
  3. HYDROCODONE BITARTRATE [Suspect]
  4. TEMAZEPAM [Suspect]
  5. ORPHENADRINE CITRATE [Suspect]
  6. BUTALBITAL [Suspect]
  7. OLANZAPINE [Suspect]
  8. ATENOLOL W/CHLORTALIDONE [Concomitant]
  9. TRIAZOLAM [Concomitant]
  10. PROTONIX [Concomitant]
  11. FLEXERIL [Concomitant]
  12. PROMETHAZINE [Concomitant]

REACTIONS (2)
  - HAEMORRHAGE [None]
  - OVERDOSE [None]
